FAERS Safety Report 25268546 (Version 1)
Quarter: 2025Q2

REPORT INFORMATION
  Report Type: Report from Study
  Country: US (occurrence: US)
  Receive Date: 20250505
  Receipt Date: 20250505
  Transmission Date: 20250717
  Serious: Yes (Other)
  Sender: TAKEDA
  Company Number: US-TAKEDA-2025TUS042322

PATIENT
  Sex: Female
  Weight: 55.011 kg

DRUGS (22)
  1. TEDUGLUTIDE [Suspect]
     Active Substance: TEDUGLUTIDE
     Indication: Short-bowel syndrome
     Dosage: 2.5 MILLIGRAM, QOD
  2. TEDUGLUTIDE [Suspect]
     Active Substance: TEDUGLUTIDE
  3. TEDUGLUTIDE [Suspect]
     Active Substance: TEDUGLUTIDE
  4. TEDUGLUTIDE [Suspect]
     Active Substance: TEDUGLUTIDE
  5. STELARA [Concomitant]
     Active Substance: USTEKINUMAB
  6. FAMOTIDINE [Concomitant]
     Active Substance: FAMOTIDINE
  7. VITAMIN A [Concomitant]
     Active Substance: VITAMIN A
  8. VITAMIN D3 [Concomitant]
     Active Substance: CHOLECALCIFEROL
  9. MAGNESIUM OXIDE [Concomitant]
     Active Substance: MAGNESIUM OXIDE
  10. IMODIUM A-D [Concomitant]
     Active Substance: LOPERAMIDE HYDROCHLORIDE
  11. ONDANSETRON HYDROCHLORIDE [Concomitant]
     Active Substance: ONDANSETRON HYDROCHLORIDE
  12. SODIUM CHLORIDE [Concomitant]
     Active Substance: SODIUM CHLORIDE
  13. PAXIL [Concomitant]
     Active Substance: PAROXETINE HYDROCHLORIDE
  14. METOPROLOL TARTRATE [Concomitant]
     Active Substance: METOPROLOL TARTRATE
  15. FENOFIBRATE [Concomitant]
     Active Substance: FENOFIBRATE
  16. ASPIRIN [Concomitant]
     Active Substance: ASPIRIN
  17. XANAX [Concomitant]
     Active Substance: ALPRAZOLAM
  18. VITAMIN B12 [Concomitant]
     Active Substance: CYANOCOBALAMIN
  19. MELATONIN [Concomitant]
     Active Substance: MELATONIN
  20. SODIUM BICARBONATE [Concomitant]
     Active Substance: SODIUM BICARBONATE
  21. CORLANOR [Concomitant]
     Active Substance: IVABRADINE HYDROCHLORIDE
  22. LOMOTIL [Concomitant]
     Active Substance: ATROPINE SULFATE\DIPHENOXYLATE HYDROCHLORIDE

REACTIONS (2)
  - Renal failure [Unknown]
  - Diarrhoea [Unknown]
